FAERS Safety Report 8760241 (Version 1)
Quarter: 2012Q4

REPORT INFORMATION
  Report Type: Spontaneous
  Country: US (occurrence: None)
  Receive Date: 20120828
  Receipt Date: 20120828
  Transmission Date: 20130627
  Serious: No
  Sender: FDA-Public Use
  Company Number: None

PATIENT
  Sex: Female
  Weight: 48.08 kg

DRUGS (2)
  1. DALIVESP [Suspect]
     Indication: PROPHYLAXIS
     Dates: start: 20120508
  2. DALIVESP [Suspect]
     Indication: COPD
     Dates: start: 20120508

REACTIONS (3)
  - Abdominal pain [None]
  - Nausea [None]
  - Decreased appetite [None]
